FAERS Safety Report 5536078-1 (Version None)
Quarter: 2007Q4

REPORT INFORMATION
  Report Type: 
  Country: None (occurrence: None)
  Receive Date: 20071204
  Receipt Date: 20071126
  Transmission Date: 20080405
  Serious: Yes (Death)
  Sender: FDA-Public Use
  Company Number: 163-20785-07111388

PATIENT
  Age: 69 Year
  Sex: Male

DRUGS (3)
  1. THALOMID [Suspect]
     Indication: MULTIPLE MYELOMA
     Dosage: 50 MG, 1 IN 1 D, ORAL; 50-200 MG, DAILY, ORAL
     Route: 048
     Dates: start: 20020626, end: 20041028
  2. THALOMID [Suspect]
     Indication: MULTIPLE MYELOMA
     Dosage: 50 MG, 1 IN 1 D, ORAL; 50-200 MG, DAILY, ORAL
     Route: 048
     Dates: start: 20060519, end: 20070313
  3. THALOMID [Suspect]
     Indication: MULTIPLE MYELOMA
     Dosage: 50 MG, 1 IN 1 D, ORAL; 50-200 MG, DAILY, ORAL
     Route: 048
     Dates: start: 20070813, end: 20070906

REACTIONS (3)
  - CARDIAC ARREST [None]
  - INJURY [None]
  - NERVOUS SYSTEM DISORDER [None]
